FAERS Safety Report 9377511 (Version 1)
Quarter: 2013Q3

REPORT INFORMATION
  Report Type: Spontaneous
  Country: FR (occurrence: FR)
  Receive Date: 20130701
  Receipt Date: 20130701
  Transmission Date: 20140515
  Serious: Yes (Hospitalization)
  Sender: FDA-Public Use
  Company Number: PHHY2013FR066808

PATIENT
  Age: 82 Year
  Sex: Female

DRUGS (7)
  1. EXFORGE [Suspect]
     Indication: HYPERTENSION
     Dosage: 1 DF (160 MG VALS/ 5 MG AMLO), PER DAY
     Route: 048
  2. ATENOLOL [Suspect]
     Indication: HYPERTENSION
     Dosage: 1 DF (50MG), DAILY
     Route: 048
     Dates: start: 20100705
  3. DIGOXINE NATIVELLE [Suspect]
     Indication: ATRIAL FIBRILLATION
     Dosage: 1 DF (0.25MG), IN 1 DAY
     Route: 048
     Dates: start: 20100705, end: 20100907
  4. MINISINTROM [Concomitant]
     Indication: ATRIAL FIBRILLATION
     Dosage: 1 DF (1MG), IN A DAY
     Dates: start: 20100705
  5. MINISINTROM [Concomitant]
     Dosage: DOSE REDUCED
  6. LEVOTHYROX [Concomitant]
     Dosage: 1 DF, IN A DAY
     Route: 048
  7. MYCOSTATINE [Concomitant]
     Dosage: 1 DF, IN A DAY
     Route: 048
     Dates: start: 20100906

REACTIONS (4)
  - Cardiac failure [Recovered/Resolved]
  - Asthenia [Recovered/Resolved]
  - Arrhythmia [Recovered/Resolved]
  - Anorexia nervosa [Recovered/Resolved]
